FAERS Safety Report 7773917-8 (Version None)
Quarter: 2011Q3

REPORT INFORMATION
  Report Type: 
  Country: None (occurrence: None)
  Receive Date: 20110920
  Receipt Date: 20110914
  Transmission Date: 20111222
  Serious: Yes (Hospitalization, Other)
  Sender: FDA-Public Use
  Company Number: 2011SP042416

PATIENT
  Age: 59 Year
  Sex: Male
  Weight: 73 kg

DRUGS (11)
  1. LANSOPRAZOLE [Concomitant]
  2. DEPAKENE [Concomitant]
  3. SULFAMETHOXAZOLE AND TRIMETHOPRIM [Concomitant]
  4. RAMELTEON [Concomitant]
  5. TEMODAL [Suspect]
     Indication: GLIOBLASTOMA MULTIFORME
     Dosage: 360 MG/M2;QD;PO 1900 MG/M2;ONCE;PO
     Route: 048
     Dates: start: 20110907, end: 20110907
  6. TEMODAL [Suspect]
     Indication: GLIOBLASTOMA MULTIFORME
     Dosage: 360 MG/M2;QD;PO 1900 MG/M2;ONCE;PO
     Route: 048
     Dates: end: 20110906
  7. BETAMETHASONE SODIUM PHOSPHATE [Suspect]
     Indication: BRAIN OEDEMA
     Dosage: 0.5 MG; BID; PO
     Route: 048
     Dates: start: 20110614, end: 20110907
  8. LEVOTHYROXINE SODIUM HYDRATE [Concomitant]
  9. CORTRIL [Suspect]
     Indication: HYPOPITUITARISM
     Dosage: 10 MG; PO
     Route: 048
  10. LIPITOR [Concomitant]
  11. ETIZOLAM [Concomitant]

REACTIONS (4)
  - DISEASE RECURRENCE [None]
  - PANIC DISORDER [None]
  - TEMPORAL LOBE EPILEPSY [None]
  - ACCIDENTAL OVERDOSE [None]
